FAERS Safety Report 25289237 (Version 6)
Quarter: 2025Q4

REPORT INFORMATION
  Report Type: Report from Study
  Country: US (occurrence: None)
  Receive Date: 20250509
  Receipt Date: 20251117
  Transmission Date: 20260117
  Serious: Yes (Hospitalization, Other)
  Sender: UCB
  Company Number: US-UCBSA-2025026143

PATIENT
  Age: 23 Year
  Weight: 46.3 kg

DRUGS (26)
  1. FENFLURAMINE [Suspect]
     Active Substance: FENFLURAMINE
     Indication: Severe myoclonic epilepsy of infancy
     Dosage: 5.5 MILLILITER, 2X/DAY (BID)
  2. FENFLURAMINE [Suspect]
     Active Substance: FENFLURAMINE
     Dosage: 5.5 ML BY PER G TUBE ROUTE IN THE MORNING AND 5.5 ML BEFORE BEDTIME.
  3. FENFLURAMINE [Suspect]
     Active Substance: FENFLURAMINE
     Dosage: 11 MILLIGRAM, ONCE DAILY (QD)
  4. FENFLURAMINE [Suspect]
     Active Substance: FENFLURAMINE
     Dosage: 5.5 MILLILITER, 2X/DAY (BID)
  5. FENFLURAMINE [Suspect]
     Active Substance: FENFLURAMINE
     Dosage: 5.5 MILLILITER, 2X/DAY (BID)
  6. FENFLURAMINE [Suspect]
     Active Substance: FENFLURAMINE
     Dosage: 5.5 MILLILITER, 2X/DAY (BID)
  7. POTASSIUM BROMIDE [Suspect]
     Active Substance: POTASSIUM BROMIDE
     Indication: Product used for unknown indication
     Dosage: 500 MILLIGRAM, 2X/DAY (BID)
  8. EPIDIOLEX [Concomitant]
     Active Substance: CANNABIDIOL
     Indication: Product used for unknown indication
     Dosage: 100 MG/ML SOLUTION, 4.2 ML (420 MG TOTAL) BY PER G TUBE ROUTE IN THE MORNING AND 4.2 ML (420 MG TOTAL) BEFORE BEDTIME
  9. ONFI [Concomitant]
     Active Substance: CLOBAZAM
     Indication: Product used for unknown indication
     Dosage: 0.5 TABLETS (5 MG TOTAL) BY PER G TUBE ROUTE EVERY NIGHT. TAKES WITH THE 20MG + 5MG = 25 MG
  10. ONFI [Concomitant]
     Active Substance: CLOBAZAM
     Dosage: 1 TABLET (20 MG TOTAL) BY PER G TUBE ROUTE 1 (ONE) TIME EACH DAY IN THE MORNING.
  11. DIASTAT ACUDIAL [Concomitant]
     Active Substance: DIAZEPAM
     Indication: Product used for unknown indication
     Dosage: 10 MG RECTAL KIT, INSERT 10 MG INTO THE RECTUM ONCE AS NEEDED FOR SEIZURES (FOR ACUTE SEIZURE).,
  12. ALBUTEROL [Concomitant]
     Active Substance: ALBUTEROL
     Indication: Product used for unknown indication
     Dosage: INHALE 2 PUFFS EVERY 6 (SIX) HOURS IF NEEDED FOR WHEEZING OR SHORTNESS OF BREATH.
  13. ALPHA LIPOIC ACID [Concomitant]
     Active Substance: .ALPHA.-LIPOIC ACID
     Indication: Product used for unknown indication
     Dosage: 1 CAPSULE BY PER G TUBE ROUTE 1 (ONE) TIME
  14. DIETARY SUPPLEMENT [Concomitant]
     Active Substance: DIETARY SUPPLEMENT
     Indication: Product used for unknown indication
     Dosage: 38.5 G BY PER G TUBE ROUTE 5 (FIVE) TIMES A DAY
  15. SYMBICORT [Concomitant]
     Active Substance: BUDESONIDE\FORMOTEROL FUMARATE DIHYDRATE
     Indication: Nasal congestion
     Dosage: 160-4.5 MCG/ACT INHALER, INHALE 2 PUFFS 2
  16. CHOLECALCIFEROL [Concomitant]
     Active Substance: CHOLECALCIFEROL
     Indication: Product used for unknown indication
     Dosage: 1 TABLET (1,000 UNITS TOTAL) BY PER G TUBE ROUTE 1 (ONE) TIME EACH DAY IN THE AFTERNOON.
  17. FYCOMPA [Concomitant]
     Active Substance: PERAMPANEL
     Indication: Product used for unknown indication
     Dosage: 2 MG TABLET, 2 TABLETS (4 MG TOTAL) BY PER G TUBE ROUTE EVERY NIGHT
  18. LINZESS [Concomitant]
     Active Substance: LINACLOTIDE
     Indication: Product used for unknown indication
     Dosage: 290 MCG CAPSULE,
  19. THIAMINE [Concomitant]
     Active Substance: THIAMINE
     Indication: Product used for unknown indication
     Dosage: 100 MG TABLET, 1 TABLET (100 MG TOTAL) BY PER G TUBE ROUTE IN THE MORNING AND 1 TABLET (100 MG TOTAL) AT NOON AND 1 TABLET (100 MG TOTAL) BEFORE BEDTIME
  20. VALTOCO [Concomitant]
     Active Substance: DIAZEPAM
     Indication: Seizure cluster
     Dosage: 10 MG DOSE 10 MG/0.1 ML LIQUID, INHALE 1 SPRAY 1 (ONE) TIME IF NEEDED (CLUSTER SEIZURE).,
  21. CARNITOR [Concomitant]
     Active Substance: LEVOCARNITINE
     Indication: Product used for unknown indication
     Dosage: 1 GM/10ML SOLUTION, 5 ML (500 MG TOTAL) BY PER G TUBE ROUTE IN THE MORNING AND 5 ML (500 MG TOTAL) AT NOON AND 5 ML (500 MG TOTAL) BEFORE BEDTIME. TAKES 500 MG IN THE MORNING, 500 MG AT NOON, AND 500 MG BEFORE BEDTIME
  22. DIETARY SUPPLEMENT [Concomitant]
     Active Substance: DIETARY SUPPLEMENT
     Indication: Product used for unknown indication
     Dosage: TAKE BY MOUTH
  23. LYRICA [Concomitant]
     Active Substance: PREGABALIN
     Indication: Product used for unknown indication
     Dosage: 300 MG CAPSULE, 1 CAPSULE (300 MG TOTAL) BY PER G TUBE ROUTE IN THE MORNING AND 1 CAPSULE (300 MG TOTAL) BEFORE BEDTIME., DISP: 180 CAPSULE, RFL: 3
  24. MYSOLINE [Concomitant]
     Active Substance: PRIMIDONE
     Indication: Product used for unknown indication
     Dosage: 50 MG TABLET, 2 TABLETS (100 MG TOTAL) BY PER G TUBE ROUTE IN THE MORNING AND 2 TABLETS (100 MG TOTAL) AT NOON AND 2 TABLETS (100 MG TOTAL) BEFORE BEDTIME
  25. RISPERDAL [Concomitant]
     Active Substance: RISPERIDONE
     Indication: Product used for unknown indication
     Dosage: 1 MG TABLET, 2 TABLETS (2 MG TOTAL) BY PER G TUBE ROUTE IN THE MORNING AND 2 TABLETS (2 MG TOTAL) AT NOON AND 2 TABLETS (2 MG TOTAL) BEFORE BEDTIME.
  26. MYCOSTATIN [Concomitant]
     Active Substance: NYSTATIN
     Indication: Product used for unknown indication
     Dosage: 100000 UNIT /ML SUSPENSION, TAKE 5 ML (500,000 UNITS TOTAL) BY MOUTH 4 (FOUR) TIMES A DAY. SWISH IN THE MOUTH AND RETAIN FOR SEVERAL MINUTES BEFORE SWALLOWING.

REACTIONS (7)
  - Hospitalisation [Not Recovered/Not Resolved]
  - Mitral valve incompetence [Not Recovered/Not Resolved]
  - Mitral valve thickening [Unknown]
  - Seizure [Unknown]
  - Ear infection [Not Recovered/Not Resolved]
  - Neuralgia [Not Recovered/Not Resolved]
  - Somnolence [Not Recovered/Not Resolved]
